FAERS Safety Report 23114929 (Version 1)
Quarter: 2023Q4

REPORT INFORMATION
  Report Type: Spontaneous
  Country: US (occurrence: None)
  Receive Date: 20231026
  Receipt Date: 20231026
  Transmission Date: 20240110
  Serious: No
  Sender: FDA-Public Use
  Company Number: None

PATIENT
  Sex: Male
  Weight: 73.4 kg

DRUGS (4)
  1. FLUOROURACIL [Suspect]
     Active Substance: FLUOROURACIL
     Dates: end: 20231018
  2. CAMPTOSAR [Suspect]
     Active Substance: IRINOTECAN HYDROCHLORIDE
     Dates: end: 20231018
  3. LEUCOVORIN CALCIUM [Suspect]
     Active Substance: LEUCOVORIN CALCIUM
     Dates: end: 20231018
  4. ELOXATIN [Suspect]
     Active Substance: OXALIPLATIN
     Dates: end: 20231018

REACTIONS (5)
  - Blood pressure increased [None]
  - Stress [None]
  - Economic problem [None]
  - Social problem [None]
  - Anxiety [None]

NARRATIVE: CASE EVENT DATE: 20230726
